FAERS Safety Report 7561133-4 (Version None)
Quarter: 2011Q2

REPORT INFORMATION
  Report Type: 
  Country: None (occurrence: None)
  Receive Date: 20110621
  Receipt Date: 20110614
  Transmission Date: 20111010
  Serious: Yes (Hospitalization, Other)
  Sender: FDA-Public Use
  Company Number: US-ABBOTT-11P-163-0731812-00

PATIENT
  Age: 79 Year
  Sex: Male

DRUGS (8)
  1. UNKNOWN MEDICATION [Concomitant]
     Indication: MUSCLE SPASMS
  2. XANAX [Concomitant]
     Indication: ANXIETY
     Dosage: AT BEDTIME AS NEEDED
  3. METAMUCIL-2 [Concomitant]
     Indication: PRODUCT USED FOR UNKNOWN INDICATION
     Dosage: 6 DAILY
  4. HUMIRA [Suspect]
     Indication: CROHN'S DISEASE
     Dates: start: 20110114
  5. LOPRESSOR [Concomitant]
     Indication: BLOOD PRESSURE
  6. MEGACE [Concomitant]
     Indication: APPETITE DISORDER
  7. VITAMIN B-12 [Concomitant]
     Indication: PRODUCT USED FOR UNKNOWN INDICATION
     Dosage: EVERY MONTH
  8. LOMOTIL [Suspect]
     Indication: DIARRHOEA
     Dosage: 6 PILLS DAILY

REACTIONS (6)
  - ILEUS [None]
  - INTESTINAL STENOSIS [None]
  - DRUG INEFFECTIVE [None]
  - DEHYDRATION [None]
  - HOSPITALISATION [None]
  - DIARRHOEA [None]
